FAERS Safety Report 8539756 (Version 4)
Quarter: 2012Q4

REPORT INFORMATION
  Report Type: Report from Study
  Country: JP (occurrence: JP)
  Receive Date: 20120502
  Receipt Date: 20121220
  Transmission Date: 20130627
  Serious: Yes (Death, Life-Threatening, Hospitalization, Other)
  Sender: FDA-Public Use
  Company Number: JP-BAYER-2012-039506

PATIENT
  Age: 59 Year
  Sex: Male
  Weight: 64 kg

DRUGS (18)
  1. NEXAVAR [Suspect]
     Indication: CARCINOMA HEPATOCELLULAR
     Dosage: 400 mg, QD
     Route: 048
     Dates: start: 20111011, end: 20111124
  2. NEXAVAR [Suspect]
     Indication: CARCINOMA HEPATOCELLULAR
     Dosage: 200 mg, QD
     Dates: start: 20111124, end: 20111206
  3. NEXAVAR [Suspect]
     Indication: CARCINOMA HEPATOCELLULAR
     Dosage: 400 mg, QOD
     Dates: start: 20111214, end: 20120207
  4. CLEANAL [Concomitant]
     Dosage: Daily dose 600 mg
     Route: 048
     Dates: start: 20111228
  5. ROZEREM [Concomitant]
     Dosage: Daily dose 8 mg
     Route: 048
     Dates: start: 20111215
  6. AMARYL [Concomitant]
     Dosage: Daily dose 3 mg
     Route: 048
  7. JANUVIA [Concomitant]
     Dosage: Daily dose 50 mg
     Route: 048
  8. BARACLUDE [Concomitant]
     Dosage: Daily dose .5 mg
     Route: 048
  9. LOXONIN [Concomitant]
     Dosage: Daily dose 60 mg
     Route: 048
  10. MUCOSTA [Concomitant]
     Dosage: 100 mg, PRN
     Route: 048
     Dates: start: 20111014
  11. PL GRAN. [Concomitant]
     Dosage: 3 g, PRN
     Route: 048
     Dates: start: 20111025
  12. SP [Concomitant]
     Dosage: 1.5 mg, PRN
     Route: 048
     Dates: start: 20111025
  13. HALCION [Concomitant]
     Dosage: Daily dose .5 mg
     Route: 048
  14. XYZAL [Concomitant]
     Dosage: Daily dose 5 mg
     Route: 048
     Dates: start: 20111108, end: 20111121
  15. ELPINAN [Concomitant]
     Dosage: Daily dose 20 mg
     Route: 048
     Dates: start: 20111122, end: 20111205
  16. RINDERON-VG [Concomitant]
     Dosage: UNK
     Route: 061
     Dates: start: 20111108
  17. MINOMYCIN [Concomitant]
     Dosage: Daily dose 100 mg
     Route: 048
     Dates: start: 20111108, end: 20111205
  18. IODINE [Concomitant]
     Dosage: UNK
     Route: 061
     Dates: start: 20111108

REACTIONS (4)
  - Hepatic encephalopathy [Recovered/Resolved]
  - Hepatic failure [Fatal]
  - Hepatocellular carcinoma [Fatal]
  - Pneumonia chlamydial [Recovered/Resolved]
